FAERS Safety Report 7371058-5 (Version None)
Quarter: 2011Q1

REPORT INFORMATION
  Report Type: 
  Country: None (occurrence: None)
  Receive Date: 20110318
  Receipt Date: 20110318
  Transmission Date: 20110831
  Serious: Yes (Hospitalization)
  Sender: FDA-Public Use
  Company Number: None

PATIENT
  Age: 14 Year
  Sex: Male
  Weight: 104 kg

DRUGS (2)
  1. CLOZAPINE [Suspect]
     Dosage: 200 MG DAILY-HS PO
     Route: 048
  2. CLOZAPINE [Suspect]
     Indication: SCHIZOPHRENIA, UNDIFFERENTIATED TYPE
     Dosage: 100 MG DAILY-AM PO
     Route: 048
     Dates: start: 20110127, end: 20110216

REACTIONS (7)
  - CONDITION AGGRAVATED [None]
  - CHEST PAIN [None]
  - TACHYCARDIA [None]
  - BODY TEMPERATURE INCREASED [None]
  - MALAISE [None]
  - FULL BLOOD COUNT ABNORMAL [None]
  - INFLUENZA VIRUS TEST POSITIVE [None]
